FAERS Safety Report 9329565 (Version 1)
Quarter: 2013Q2

REPORT INFORMATION
  Report Type: Spontaneous
  Country: US (occurrence: None)
  Receive Date: 20130531
  Receipt Date: 20130531
  Transmission Date: 20140414
  Serious: Yes (Other)
  Sender: FDA-Public Use
  Company Number: FK201301680

PATIENT
  Age: 35 Year
  Sex: Female

DRUGS (11)
  1. METHYLPREDNISOLONE (MANUFACTURER UNKNOWN) (METHYLPREDNISOLONE SODIUM SUCCINATE) (METHYLPREDNISOLONE SODIUM SUCCINATE) [Suspect]
     Indication: MYASTHENIA GRAVIS CRISIS
     Route: 042
  2. PYRIDOSTIGMINE BROMIDE (PYRIDOSTIGMINE BROMIDE) [Concomitant]
  3. PREDNISONE (PREDNISONE) [Concomitant]
  4. MYCOPHENOLATE MOFETIL (MYCOPHENOLATE MOFETIL) [Concomitant]
  5. LEVONORGESTROL ETHINYL ESTRADIOL [Concomitant]
  6. OMEPRAZOLE (OMEPRAZOLE) [Concomitant]
  7. PROPOFOL (PROPOFOL) [Concomitant]
  8. FENTANYL (FENTANYL) [Concomitant]
  9. HEPARIN (HEPARIN) [Concomitant]
  10. FAMOTIDINE(FAMOTIDINE) [Concomitant]
  11. ALBUTEROL [Concomitant]

REACTIONS (3)
  - Macroglossia [None]
  - Stridor [None]
  - Laryngeal oedema [None]
